FAERS Safety Report 6360968-3 (Version None)
Quarter: 2009Q3

REPORT INFORMATION
  Report Type: 
  Country: None (occurrence: None)
  Receive Date: 20090918
  Receipt Date: 20090915
  Transmission Date: 20100115
  Serious: Yes (Death, Hospitalization)
  Sender: FDA-Public Use
  Company Number: BR-BRISTOL-MYERS SQUIBB COMPANY-14777999

PATIENT
  Age: 57 Year
  Sex: Female

DRUGS (8)
  1. ORENCIA [Suspect]
     Indication: RHEUMATOID ARTHRITIS
     Dosage: DISCONTINUED ON MAY2009 LAST DOSE:08APR09
     Route: 042
     Dates: start: 20050501, end: 20090408
  2. INFLIXIMAB [Suspect]
     Dosage: TAKEN 2 INF
     Dates: start: 20090717
  3. METHOTREXATE [Concomitant]
  4. PREDNISONE [Concomitant]
  5. NAPROXEN [Concomitant]
  6. CALCIUM CARBONATE [Concomitant]
  7. ALENDRONATE SODIUM [Concomitant]
  8. OMEPRAZOLE [Concomitant]

REACTIONS (4)
  - DRUG INEFFECTIVE [None]
  - HIP FRACTURE [None]
  - LUNG INFECTION PSEUDOMONAL [None]
  - SEPSIS [None]
